FAERS Safety Report 21263555 (Version 2)
Quarter: 2022Q4

REPORT INFORMATION
  Report Type: Spontaneous
  Country: US (occurrence: US)
  Receive Date: 20220829
  Receipt Date: 20221206
  Transmission Date: 20230113
  Serious: Yes (Other)
  Sender: FDA-Public Use
  Company Number: US-SA-SAC20220824000150

PATIENT
  Age: 20 Year
  Sex: Female

DRUGS (1)
  1. ALLEGRA [Suspect]
     Active Substance: FEXOFENADINE HYDROCHLORIDE
     Indication: Hypersensitivity
     Dosage: UNK
     Route: 065

REACTIONS (6)
  - Anaphylactic shock [Unknown]
  - Erythema [Unknown]
  - Swelling face [Unknown]
  - Peripheral swelling [Unknown]
  - Urticaria [Unknown]
  - Drug ineffective [Unknown]
